FAERS Safety Report 17323600 (Version 1)
Quarter: 2020Q1

REPORT INFORMATION
  Report Type: Spontaneous
  Country: US (occurrence: US)
  Receive Date: 20200109
  Receipt Date: 20200109
  Transmission Date: 20200409
  Serious: No
  Sender: FDA-Public Use
  Company Number: None

PATIENT
  Age: 61 Year
  Sex: Female

DRUGS (1)
  1. AMIKACIN SULFATE IV SOL 500MG/2ML [Suspect]
     Active Substance: AMIKACIN SULFATE
     Indication: BRONCHIECTASIS
     Route: 055
     Dates: start: 201911

REACTIONS (1)
  - Off label use [None]

NARRATIVE: CASE EVENT DATE: 20200109
